FAERS Safety Report 5931071-9 (Version None)
Quarter: 2008Q4

REPORT INFORMATION
  Report Type: 
  Country: None (occurrence: None)
  Receive Date: 20081027
  Receipt Date: 20081015
  Transmission Date: 20090506
  Serious: Yes (Life-Threatening, Hospitalization)
  Sender: FDA-Public Use
  Company Number: FR-ROCHE-591925

PATIENT
  Sex: Male

DRUGS (6)
  1. VESANOID [Suspect]
     Route: 048
     Dates: start: 20080704, end: 20080724
  2. CANCIDAS [Concomitant]
     Route: 042
     Dates: start: 20080716
  3. RIFADIN [Concomitant]
     Route: 042
     Dates: start: 20080722
  4. VANCOMYCIN HCL [Concomitant]
     Route: 042
     Dates: start: 20080713
  5. TAVANIC [Concomitant]
     Route: 042
     Dates: start: 20080704
  6. TIENAM [Concomitant]
     Route: 042
     Dates: start: 20080721

REACTIONS (4)
  - HAEMOPTYSIS [None]
  - HYPOTENSION [None]
  - MYOCARDITIS [None]
  - RESPIRATORY DISTRESS [None]
